FAERS Safety Report 4788859-X (Version None)
Quarter: 2005Q4

REPORT INFORMATION
  Report Type: 
  Country: None (occurrence: None)
  Receive Date: 20051004
  Receipt Date: 20050920
  Transmission Date: 20060501
  Serious: Yes (Hospitalization)
  Sender: FDA-Public Use
  Company Number: 02100-JPN-05-0468

PATIENT
  Age: 73 Year
  Sex: Male

DRUGS (8)
  1. CILOSTAZOL [Suspect]
     Indication: CEREBRAL INFARCTION
     Dosage: 200 MG, ORAL
     Route: 048
     Dates: start: 20040901
  2. TIAPRIDE HYDROCHLORIDE [Concomitant]
  3. NICERGOLINE [Concomitant]
  4. BIFIDOBACTERIUM [Concomitant]
  5. TRIMEBUTINE MALEATE [Concomitant]
  6. AZULENE SULFONATE SODIUM/L-GLUTAMINE [Concomitant]
  7. AMANTADINE HCL [Concomitant]
  8. TICLOPIDINE HYDROCHLORIDE [Concomitant]

REACTIONS (12)
  - ADVERSE EVENT [None]
  - ANAEMIA [None]
  - ANOREXIA [None]
  - BLOOD GLUCOSE ABNORMAL [None]
  - BRADYPHRENIA [None]
  - DECREASED APPETITE [None]
  - DEHYDRATION [None]
  - EATING DISORDER [None]
  - ELECTROCARDIOGRAM ST SEGMENT DEPRESSION [None]
  - HYPOPROTEINAEMIA [None]
  - MALAISE [None]
  - MYOCARDIAL ISCHAEMIA [None]
